FAERS Safety Report 17361373 (Version 5)
Quarter: 2020Q2

REPORT INFORMATION
  Report Type: Spontaneous
  Country: US (occurrence: US)
  Receive Date: 20200203
  Receipt Date: 20200519
  Transmission Date: 20200713
  Serious: No
  Sender: FDA-Public Use
  Company Number: US-PFIZER INC-2019241232

PATIENT
  Age: 52 Year
  Sex: Female
  Weight: 75.75 kg

DRUGS (3)
  1. LYRICA [Suspect]
     Active Substance: PREGABALIN
     Indication: ATAXIA
     Dosage: 150 MG, 1X/DAY (BEFORE BEDTIME)
     Route: 048
  2. LYRICA [Suspect]
     Active Substance: PREGABALIN
     Indication: SMALL FIBRE NEUROPATHY
  3. LYRICA [Suspect]
     Active Substance: PREGABALIN
     Indication: ESSENTIAL TREMOR
     Dosage: 150 MG, 1X/DAY (BEFORE BEDTIME)
     Route: 048
     Dates: start: 20190530

REACTIONS (7)
  - Epistaxis [Unknown]
  - Product use in unapproved indication [Unknown]
  - Off label use [Unknown]
  - Malaise [Unknown]
  - Pain [Unknown]
  - Bronchitis [Recovered/Resolved]
  - Intentional dose omission [Unknown]

NARRATIVE: CASE EVENT DATE: 20190530
